FAERS Safety Report 5880526-4 (Version None)
Quarter: 2008Q3

REPORT INFORMATION
  Report Type: 
  Country: None (occurrence: None)
  Receive Date: 20080912
  Receipt Date: 20080617
  Transmission Date: 20090109
  Serious: No
  Sender: FDA-Public Use
  Company Number: US-ABBOTT-08P-163-0453827-00

PATIENT
  Sex: Female

DRUGS (15)
  1. HUMIRA [Suspect]
     Indication: CROHN'S DISEASE
     Route: 058
     Dates: start: 20080425
  2. HUMIRA [Suspect]
  3. PREDNISONE TAB [Suspect]
     Indication: DRUG USE FOR UNKNOWN INDICATION
     Route: 048
  4. LAMOTRIGINE [Concomitant]
     Indication: BIPOLAR DISORDER
     Dates: start: 20060101
  5. TRAMADOL HCL [Concomitant]
     Indication: PAIN
     Dosage: 100MG AM, 200MG PM
     Dates: start: 20080401
  6. SERTRALINE [Concomitant]
     Indication: BIPOLAR DISORDER
     Dates: start: 19960101
  7. CARBAMAZEPINE [Concomitant]
     Indication: BIPOLAR DISORDER
     Dates: start: 19960101
  8. CLONAZEPAM [Concomitant]
     Indication: PAIN
     Route: 048
     Dates: start: 19960101
  9. HYDROCHLOROTHIAZIDE [Concomitant]
     Indication: BLOOD PRESSURE
     Route: 048
     Dates: start: 20080301
  10. METOPROLOL TARTRATE [Concomitant]
     Indication: BLOOD PRESSURE
     Dates: start: 20080301
  11. PREDNISONE TAB [Concomitant]
     Indication: CROHN'S DISEASE
     Dates: start: 20080313
  12. LOMOTIL [Concomitant]
     Indication: CROHN'S DISEASE
     Dates: start: 20080313
  13. ONDANSETRON [Concomitant]
     Indication: NAUSEA
     Dates: start: 20080401
  14. NYSTATIN [Concomitant]
     Indication: CANDIDIASIS
     Dosage: SWISH AND SPIT
     Dates: start: 20080401
  15. LIDOCAINE HYDROCHLORIDE [Concomitant]
     Indication: DRUG USE FOR UNKNOWN INDICATION
     Dosage: APPLY WITH Q-TIP
     Dates: start: 20080101

REACTIONS (7)
  - BREAST DISCHARGE [None]
  - BREAST DISCOLOURATION [None]
  - BREAST DISORDER [None]
  - BREAST MASS [None]
  - CONTUSION [None]
  - DRUG INEFFECTIVE [None]
  - PAIN [None]
